FAERS Safety Report 9302023 (Version 1)
Quarter: 2013Q2

REPORT INFORMATION
  Report Type: Spontaneous
  Country: US (occurrence: US)
  Receive Date: 20130521
  Receipt Date: 20130521
  Transmission Date: 20140414
  Serious: Yes (Hospitalization)
  Sender: FDA-Public Use
  Company Number: US-FRI-1000045121

PATIENT
  Sex: Female

DRUGS (3)
  1. VIIBRYD [Suspect]
     Dosage: 40MG
  2. ALBUTEROL SULFATE [Concomitant]
  3. MVI [Concomitant]

REACTIONS (3)
  - Asthma [Unknown]
  - Weight increased [Unknown]
  - Oedema [Unknown]
